FAERS Safety Report 6778800-2 (Version None)
Quarter: 2010Q2

REPORT INFORMATION
  Report Type: 
  Country: None (occurrence: None)
  Receive Date: 20100618
  Receipt Date: 20100609
  Transmission Date: 20101027
  Serious: Yes (Other)
  Sender: FDA-Public Use
  Company Number: CA-JNJFOC-20100603610

PATIENT
  Sex: Male
  Weight: 121 kg

DRUGS (3)
  1. REMICADE [Suspect]
     Indication: ANKYLOSING SPONDYLITIS
     Dosage: 21ST INFUSION AND FIRST DOSE OF 400MG
     Route: 042
  2. REMICADE [Suspect]
     Route: 042
  3. ATACAND [Concomitant]

REACTIONS (1)
  - EPISTAXIS [None]
